FAERS Safety Report 17888486 (Version 1)
Quarter: 2020Q2

REPORT INFORMATION
  Report Type: Spontaneous
  Country: DE (occurrence: DE)
  Receive Date: 20200612
  Receipt Date: 20200612
  Transmission Date: 20200714
  Serious: Yes (Hospitalization)
  Sender: FDA-Public Use
  Company Number: DE-TEVA-2020-DE-1247540

PATIENT
  Age: 59 Year
  Sex: Female

DRUGS (9)
  1. LEVOTHYROXIN-NATRIUM [Concomitant]
     Active Substance: LEVOTHYROXINE SODIUM
     Dosage: 75 MICROGRAM DAILY; 1-0-0-0
     Route: 048
  2. LOSARTAN. [Concomitant]
     Active Substance: LOSARTAN
     Dosage: 100 MILLIGRAM DAILY; 50 MG, 2-0-0-0
     Route: 048
  3. CISPLATIN. [Suspect]
     Active Substance: CISPLATIN
     Route: 042
  4. BICANORM [Concomitant]
     Active Substance: SODIUM BICARBONATE
     Dosage: 3 DOSAGE FORMS DAILY; 1-1-1-0
     Route: 048
  5. DALTEPARIN [Concomitant]
     Active Substance: DALTEPARIN
     Dosage: 5000 IU (INTERNATIONAL UNIT) DAILY; 0-0-1-0, PRE-FILLED SYRINGES
     Route: 058
  6. GEMCITABINE. [Suspect]
     Active Substance: GEMCITABINE
     Route: 042
  7. AMLODIPIN [Concomitant]
     Active Substance: AMLODIPINE BESYLATE
     Dosage: 10 MILLIGRAM DAILY; 1-0-0-0
     Route: 048
  8. PANTOPRAZOL [Concomitant]
     Active Substance: PANTOPRAZOLE SODIUM
     Dosage: 40 MILLIGRAM DAILY;  0-0-1-0
     Route: 048
  9. ACETYLCYSTEIN [Concomitant]
     Active Substance: ACETYLCYSTEINE
     Dosage: 600 MILLIGRAM DAILY; 1-0-0-0
     Route: 048

REACTIONS (4)
  - Soft tissue swelling [Unknown]
  - Inflammation [Unknown]
  - General physical health deterioration [Unknown]
  - Infection [Unknown]
